FAERS Safety Report 23064915 (Version 1)
Quarter: 2023Q4

REPORT INFORMATION
  Report Type: Spontaneous
  Country: US (occurrence: None)
  Receive Date: 20231013
  Receipt Date: 20231013
  Transmission Date: 20240109
  Serious: Yes (Life-Threatening, Hospitalization, Other)
  Sender: FDA-Public Use
  Company Number: 2023A233601

PATIENT
  Age: 39 Year
  Sex: Male

DRUGS (14)
  1. PROPOFOL [Suspect]
     Active Substance: PROPOFOL
     Indication: Drug withdrawal maintenance therapy
     Dosage: UNK
  2. PROPOFOL [Suspect]
     Active Substance: PROPOFOL
     Indication: Alcohol withdrawal syndrome
     Dosage: UNK
  3. PROPOFOL [Suspect]
     Active Substance: PROPOFOL
     Indication: Drug withdrawal maintenance therapy
     Dosage: GOAL OF -1 TO -2 ON THE RICHMOND AGITATION-SEDATION SCALE (RASS)
  4. PROPOFOL [Suspect]
     Active Substance: PROPOFOL
     Indication: Alcohol withdrawal syndrome
     Dosage: GOAL OF -1 TO -2 ON THE RICHMOND AGITATION-SEDATION SCALE (RASS)
  5. QUETIAPINE [Suspect]
     Active Substance: QUETIAPINE
     Indication: Drug withdrawal maintenance therapy
     Dosage: UNK
  6. LORAZEPAM [Suspect]
     Active Substance: LORAZEPAM
     Indication: Alcohol withdrawal syndrome
     Dosage: UNK
  7. LORAZEPAM [Suspect]
     Active Substance: LORAZEPAM
     Indication: Alcohol withdrawal syndrome
     Dosage: UNK UNK, PRN
  8. HALOPERIDOL [Suspect]
     Active Substance: HALOPERIDOL
     Indication: Alcohol withdrawal syndrome
     Dosage: UNK
  9. FENTANYL [Suspect]
     Active Substance: FENTANYL
     Indication: Alcohol withdrawal syndrome
     Dosage: UNK
  10. FENTANYL [Suspect]
     Active Substance: FENTANYL
     Indication: Sedation
     Dosage: UNK
  11. MIDAZOLAM [Suspect]
     Active Substance: MIDAZOLAM
     Indication: Alcohol withdrawal syndrome
     Dosage: UNK
  12. MIDAZOLAM [Suspect]
     Active Substance: MIDAZOLAM
     Indication: Sedation
     Dosage: UNK
  13. KETAMINE [Suspect]
     Active Substance: KETAMINE
     Indication: Alcohol withdrawal syndrome
     Dosage: UNK
  14. KETAMINE [Suspect]
     Active Substance: KETAMINE
     Indication: Sedation
     Dosage: UNK

REACTIONS (3)
  - Propofol infusion syndrome [Unknown]
  - Off label use [Unknown]
  - Drug ineffective for unapproved indication [Unknown]
